FAERS Safety Report 9220737 (Version 1)
Quarter: 2013Q2

REPORT INFORMATION
  Report Type: Spontaneous
  Country: FR (occurrence: FR)
  Receive Date: 20130409
  Receipt Date: 20130409
  Transmission Date: 20140414
  Serious: Yes (Hospitalization)
  Sender: FDA-Public Use
  Company Number: FR-009507513-1304FRA001399

PATIENT
  Age: 56 Year
  Sex: Male
  Weight: 54 kg

DRUGS (10)
  1. VICTRELIS [Suspect]
     Indication: HEPATITIS C
     Dosage: 200 MG, QD
     Route: 048
     Dates: start: 20120503
  2. PEGASYS [Suspect]
     Indication: HEPATITIS C
     Dosage: 180 MICROGRAM, QW
     Dates: start: 20120320
  3. COPEGUS [Suspect]
     Indication: HEPATITIS C
     Dosage: 1000 MG, UNK
     Dates: start: 20120320
  4. DAFALGAN [Concomitant]
     Indication: INFLUENZA
     Dosage: 1 G, TID
     Dates: start: 20120320
  5. NOVORAPID [Concomitant]
     Indication: DIABETES MELLITUS
     Dosage: 30 IU, UNK
     Dates: start: 201006
  6. LANTUS [Concomitant]
     Indication: DIABETES MELLITUS
     Dosage: 32 IU, QD
     Dates: start: 201006
  7. AVLOCARDYL [Concomitant]
     Indication: PROPHYLAXIS
     Dosage: 160 MG, QD
     Dates: start: 2010
  8. FUROSEMIDE [Concomitant]
     Indication: OEDEMA
     Dosage: 40 MG, QD
     Dates: start: 201106
  9. ALDACTONE TABLETS [Concomitant]
     Indication: OEDEMA
     Dosage: 75 MG, QD
     Dates: start: 201106
  10. INEXIUM [Concomitant]
     Indication: GASTROOESOPHAGEAL REFLUX DISEASE
     Dosage: 40 MG, QD
     Dates: start: 20111108

REACTIONS (1)
  - Oesophageal variceal ligation [Recovered/Resolved]
